FAERS Safety Report 25905933 (Version 1)
Quarter: 2025Q4

REPORT INFORMATION
  Report Type: Spontaneous
  Country: US (occurrence: US)
  Receive Date: 20251010
  Receipt Date: 20251010
  Transmission Date: 20260118
  Serious: Yes (Other)
  Sender: ABBVIE
  Company Number: US-ABBVIE-6485776

PATIENT
  Sex: Female

DRUGS (3)
  1. CYCLOSPORINE [Suspect]
     Active Substance: CYCLOSPORINE
     Indication: Dry eye
     Dosage: CYCLOSPORINE SOLUTION 0.05%?ONCE IN THE MORNING AND ONCE AT NIGHT
     Route: 047
     Dates: start: 2024
  2. CYCLOSPORINE [Suspect]
     Active Substance: CYCLOSPORINE
     Route: 047
     Dates: start: 20250320
  3. CEQUA [Concomitant]
     Active Substance: CYCLOSPORINE
     Indication: Product used for unknown indication

REACTIONS (4)
  - Injection [Unknown]
  - Drug ineffective [Unknown]
  - Keratitis [Unknown]
  - Eye pain [Unknown]

NARRATIVE: CASE EVENT DATE: 20250101
